FAERS Safety Report 5043004-0 (Version None)
Quarter: 2006Q2

REPORT INFORMATION
  Report Type: 
  Country: None (occurrence: None)
  Receive Date: 20060628
  Receipt Date: 20060612
  Transmission Date: 20061013
  Serious: Yes (Other)
  Sender: FDA-Public Use
  Company Number: PHBS2006AU08888

PATIENT
  Age: 26 Year
  Sex: Female

DRUGS (2)
  1. VISUDYNE [Suspect]
     Indication: CHOROIDAL NEOVASCULARISATION
     Dosage: 6 MG/M^2 ONCE IV
     Route: 042
  2. STEROIDS [Concomitant]

REACTIONS (2)
  - RETINAL HAEMORRHAGE [None]
  - RETINOPATHY [None]
